FAERS Safety Report 8837610 (Version 1)
Quarter: 2012Q4

REPORT INFORMATION
  Report Type: 
  Country: US (occurrence: US)
  Receive Date: 20121012
  Receipt Date: 20121012
  Transmission Date: 20130627
  Serious: No
  Sender: FDA-Public Use
  Company Number: US-009507513-1210USA004493

PATIENT
  Sex: Male

DRUGS (1)
  1. INTRONA [Suspect]
     Dosage: 10 million IU, UNK

REACTIONS (3)
  - Eye pain [Unknown]
  - Drug dose omission [Unknown]
  - Product quality issue [Unknown]
